FAERS Safety Report 8059347-2 (Version None)
Quarter: 2012Q1

REPORT INFORMATION
  Report Type: 
  Country: None (occurrence: None)
  Receive Date: 20120120
  Receipt Date: 20120120
  Transmission Date: 20120608
  Serious: Yes (Other)
  Sender: FDA-Public Use
  Company Number: None

PATIENT
  Sex: Female
  Weight: 56.699 kg

DRUGS (1)
  1. BONIVA [Suspect]
     Indication: OSTEOPOROSIS
     Route: 017
     Dates: start: 20100110, end: 20101110

REACTIONS (8)
  - DISEASE PROGRESSION [None]
  - PAIN IN JAW [None]
  - BACK PAIN [None]
  - MUSCULOSKELETAL PAIN [None]
  - ARTHRALGIA [None]
  - JOINT CREPITATION [None]
  - OSTEOPOROSIS [None]
  - MYALGIA [None]
